FAERS Safety Report 7680704-8 (Version None)
Quarter: 2011Q3

REPORT INFORMATION
  Report Type: 
  Country: None (occurrence: None)
  Receive Date: 20110812
  Receipt Date: 20110804
  Transmission Date: 20111222
  Serious: No
  Sender: FDA-Public Use
  Company Number: US-JNJFOC-20110712379

PATIENT
  Sex: Female
  Weight: 72.58 kg

DRUGS (3)
  1. DURAGESIC-100 [Suspect]
     Indication: PAIN
     Route: 062
     Dates: start: 20110201
  2. DURAGESIC-100 [Suspect]
     Indication: BONE NEOPLASM MALIGNANT
     Route: 062
     Dates: start: 20110201
  3. DURAGESIC-100 [Suspect]
     Indication: LUNG NEOPLASM MALIGNANT
     Route: 062
     Dates: start: 20110201

REACTIONS (4)
  - PRODUCT QUALITY ISSUE [None]
  - WRONG TECHNIQUE IN DRUG USAGE PROCESS [None]
  - DRUG INEFFECTIVE [None]
  - PRODUCT ADHESION ISSUE [None]
